FAERS Safety Report 9740370 (Version 2)
Quarter: 2014Q2

REPORT INFORMATION
  Report Type: Spontaneous
  Country: US (occurrence: US)
  Receive Date: 20131209
  Receipt Date: 20140610
  Transmission Date: 20141212
  Serious: No
  Sender: FDA-Public Use
  Company Number: US-009507513-1312USA003207

PATIENT
  Age: 15 Year
  Sex: Male

DRUGS (1)
  1. CLARITIN-D-12 [Suspect]
     Indication: PRODUCT USED FOR UNKNOWN INDICATION
     Dosage: 10 MG, UNKNOWN
     Route: 048

REACTIONS (2)
  - Vomiting [Recovered/Resolved]
  - Inappropriate schedule of drug administration [Unknown]
